FAERS Safety Report 13427301 (Version 1)
Quarter: 2017Q2

REPORT INFORMATION
  Report Type: Spontaneous
  Country: US (occurrence: US)
  Receive Date: 20170411
  Receipt Date: 20170411
  Transmission Date: 20170830
  Serious: No
  Sender: FDA-Public Use
  Company Number: US-LEO PHARMA-300616

PATIENT
  Sex: Female

DRUGS (1)
  1. PICATO [Suspect]
     Active Substance: INGENOL MEBUTATE
     Indication: ACTINIC KERATOSIS
     Route: 061
     Dates: start: 201612

REACTIONS (4)
  - Rash pustular [Recovered/Resolved]
  - Application site erythema [Recovering/Resolving]
  - Incorrect drug administration duration [Unknown]
  - Application site pustules [Recovered/Resolved]
